FAERS Safety Report 4576576-0 (Version None)
Quarter: 2005Q1

REPORT INFORMATION
  Report Type: 
  Country: None (occurrence: None)
  Receive Date: 20050119
  Receipt Date: 20040922
  Transmission Date: 20050727
  Serious: Yes (Hospitalization)
  Sender: FDA-Public Use
  Company Number: A03200403245

PATIENT
  Age: 73 Year
  Sex: Female
  Weight: 70.7611 kg

DRUGS (6)
  1. PLAVIX [Suspect]
     Indication: MYOCARDIAL INFARCTION
     Dosage: 75 MG QD - ORAL
     Route: 048
     Dates: start: 20010101
  2. DOXAZOSIN [Concomitant]
  3. POTASSIUM CHLORIDE [Concomitant]
  4. FUROSEMIDE [Concomitant]
  5. MONTELUKAST SODIUM [Concomitant]
  6. BUDESONIDE [Concomitant]

REACTIONS (3)
  - CONTUSION [None]
  - EPISTAXIS [None]
  - RETINAL HAEMORRHAGE [None]
